FAERS Safety Report 14924322 (Version 1)
Quarter: 2018Q2

REPORT INFORMATION
  Report Type: Spontaneous
  Country: EG (occurrence: EG)
  Receive Date: 20180522
  Receipt Date: 20180522
  Transmission Date: 20180711
  Serious: Yes (Death, Hospitalization, Other)
  Sender: FDA-Public Use
  Company Number: EG-BRISTOL-MYERS SQUIBB COMPANY-BMS-2018-044670

PATIENT
  Age: 62 Year
  Sex: Female
  Weight: 80 kg

DRUGS (1)
  1. OPDIVO [Suspect]
     Active Substance: NIVOLUMAB
     Indication: NON-SMALL CELL LUNG CANCER
     Dosage: 240 MG, Q2WK
     Route: 042
     Dates: start: 20180116, end: 20180329

REACTIONS (5)
  - Facial paralysis [Unknown]
  - Hepatic enzyme increased [Unknown]
  - Urinary incontinence [Unknown]
  - Death [Fatal]
  - Myasthenia gravis [Unknown]

NARRATIVE: CASE EVENT DATE: 20180508
